FAERS Safety Report 17960508 (Version 1)
Quarter: 2020Q2

REPORT INFORMATION
  Report Type: Spontaneous
  Country: US (occurrence: US)
  Receive Date: 20200630
  Receipt Date: 20200630
  Transmission Date: 20200714
  Serious: Yes (Hospitalization, Other)
  Sender: FDA-Public Use
  Company Number: US-BIOVITRUM-2019US2922

PATIENT
  Sex: Female

DRUGS (1)
  1. KINERET [Suspect]
     Active Substance: ANAKINRA
     Indication: CHRONIC INFANTILE NEUROLOGICAL CUTANEOUS AND ARTICULAR SYNDROME
     Route: 058

REACTIONS (4)
  - Headache [Unknown]
  - Condition aggravated [Unknown]
  - Chronic infantile neurological cutaneous and articular syndrome [Unknown]
  - Varicella [Unknown]

NARRATIVE: CASE EVENT DATE: 2014
